FAERS Safety Report 8672856 (Version 2)
Quarter: 2013Q2

REPORT INFORMATION
  Report Type: Spontaneous
  Country: US (occurrence: None)
  Receive Date: 20120702
  Receipt Date: 20130408
  Transmission Date: 20140414
  Serious: Yes (Hospitalization, Disabling, Other)
  Sender: FDA-Public Use
  Company Number: ACO_30823_2012

PATIENT
  Age: 54 Year
  Sex: Male

DRUGS (4)
  1. AMPYRA [Suspect]
     Indication: GAIT DISTURBANCE
     Dosage: 10MG, BID, ORAL
     Route: 048
     Dates: start: 2011, end: 20120406
  2. LIPID MODIFYING AGENTS [Concomitant]
  3. THYROID THERAPY [Concomitant]
  4. ERGOCALCIFEROL [Concomitant]

REACTIONS (4)
  - FEMUR FRACTURE [None]
  - FALL [None]
  - INFECTION [None]
  - Abasia [None]
